FAERS Safety Report 19755669 (Version 3)
Quarter: 2022Q3

REPORT INFORMATION
  Report Type: Report from Study
  Country: US (occurrence: US)
  Receive Date: 20210827
  Receipt Date: 20220901
  Transmission Date: 20221026
  Serious: Yes (Hospitalization, Other)
  Sender: FDA-Public Use
  Company Number: US-TAKEDA-US202010379

PATIENT
  Age: 57 Year
  Sex: Female

DRUGS (2)
  1. HUMAN IMMUNOGLOBULIN G [Suspect]
     Active Substance: HUMAN IMMUNOGLOBULIN G
     Indication: Selective IgG subclass deficiency
     Dosage: 22 GRAM, 5/WEEK
     Route: 065
  2. HUMAN IMMUNOGLOBULIN G [Suspect]
     Active Substance: HUMAN IMMUNOGLOBULIN G
     Indication: Primary immunodeficiency syndrome
     Dosage: 55 GRAM
     Route: 065

REACTIONS (10)
  - Nasopharyngitis [Unknown]
  - Myositis [Unknown]
  - Crohn^s disease [Unknown]
  - Stiff person syndrome [Unknown]
  - COVID-19 [Unknown]
  - Anti-GAD antibody positive [Unknown]
  - White blood cell count decreased [Unknown]
  - Dermatomyositis [Unknown]
  - Central venous catheterisation [Unknown]
  - Muscular dystrophy [Unknown]

NARRATIVE: CASE EVENT DATE: 20200301
